FAERS Safety Report 15905711 (Version 18)
Quarter: 2022Q2

REPORT INFORMATION
  Report Type: Other
  Country: DE (occurrence: None)
  Receive Date: 20190204
  Receipt Date: 20220623
  Transmission Date: 20220720
  Serious: Yes (Other)
  Sender: FDA-Public Use
  Company Number: DE-ROCHE-2171334

PATIENT
  Age: 36 Year
  Sex: Female

DRUGS (16)
  1. OCREVUS [Suspect]
     Active Substance: OCRELIZUMAB
     Indication: Relapsing-remitting multiple sclerosis
     Route: 042
     Dates: start: 20180718
  2. OCREVUS [Suspect]
     Active Substance: OCRELIZUMAB
     Route: 042
     Dates: start: 20180801
  3. OCREVUS [Suspect]
     Active Substance: OCRELIZUMAB
     Route: 042
     Dates: start: 20190211
  4. OCREVUS [Suspect]
     Active Substance: OCRELIZUMAB
     Route: 042
     Dates: start: 20190911
  5. OCREVUS [Suspect]
     Active Substance: OCRELIZUMAB
     Route: 042
     Dates: start: 20200318
  6. OCREVUS [Suspect]
     Active Substance: OCRELIZUMAB
     Route: 042
     Dates: start: 20200908
  7. OCREVUS [Suspect]
     Active Substance: OCRELIZUMAB
     Route: 042
     Dates: start: 20210310
  8. EFEROX [Concomitant]
     Active Substance: LEVOTHYROXINE SODIUM
  9. TAMSULOSIN [Concomitant]
     Active Substance: TAMSULOSIN
  10. OXYBUTYNIN [Concomitant]
     Active Substance: OXYBUTYNIN
     Dosage: 24 TRANSDERMAL PATCH, EXCHANGE 2X/WEEK
     Route: 062
  11. IBUPROFEN [Concomitant]
     Active Substance: IBUPROFEN
  12. CHOLECALCIFEROL [Concomitant]
     Active Substance: CHOLECALCIFEROL
  13. NABIXIMOLS [Concomitant]
     Active Substance: NABIXIMOLS
  14. TIZANIDINE [Concomitant]
     Active Substance: TIZANIDINE
     Indication: Muscle spasticity
  15. TIZANIDINE [Concomitant]
     Active Substance: TIZANIDINE
     Dosage: AT NIGHT
  16. BACLOFEN [Concomitant]
     Active Substance: BACLOFEN

REACTIONS (8)
  - Urinary tract infection [Unknown]
  - Dysphagia [Recovered/Resolved]
  - Fatigue [Recovered/Resolved]
  - Spinal pain [Recovered/Resolved]
  - Muscle spasms [Not Recovered/Not Resolved]
  - Polymenorrhoea [Recovered/Resolved]
  - Diarrhoea [Recovered/Resolved]
  - Blood immunoglobulin G decreased [Not Recovered/Not Resolved]

NARRATIVE: CASE EVENT DATE: 20180718
